FAERS Safety Report 12639889 (Version 1)
Quarter: 2016Q3

REPORT INFORMATION
  Report Type: Report from Study
  Country: PL (occurrence: PL)
  Receive Date: 20160810
  Receipt Date: 20160810
  Transmission Date: 20161109
  Serious: Yes (Other)
  Sender: FDA-Public Use
  Company Number: PHHY2016PL106792

PATIENT
  Age: 57 Year
  Sex: Male

DRUGS (1)
  1. IMATINIB [Suspect]
     Active Substance: IMATINIB
     Indication: CHRONIC MYELOID LEUKAEMIA
     Dosage: 400 MG, QD
     Route: 065
     Dates: start: 20150113, end: 20150403

REACTIONS (6)
  - Venous thrombosis limb [Unknown]
  - Haemolysis [Unknown]
  - Anaemia [Unknown]
  - Neutrophil count decreased [Unknown]
  - Helicobacter gastritis [Unknown]
  - Abdominal pain [Unknown]

NARRATIVE: CASE EVENT DATE: 201509
